FAERS Safety Report 21757783 (Version 1)
Quarter: 2022Q4

REPORT INFORMATION
  Report Type: Other
  Country: US (occurrence: US)
  Receive Date: 20221221
  Receipt Date: 20221221
  Transmission Date: 20230113
  Serious: Yes (Hospitalization)
  Sender: FDA-Public Use
  Company Number: US-BoehringerIngelheim-2021-BI-100771

PATIENT
  Age: 52 Year
  Sex: Male

DRUGS (3)
  1. ALTEPLASE [Suspect]
     Active Substance: ALTEPLASE
     Indication: Spinal stroke
     Dosage: INTRA-ARTERIAL INJECTION? TOTAL 4 MG T-PA
     Route: 013
  2. EPTIFIBATIDE [Suspect]
     Active Substance: EPTIFIBATIDE
     Indication: Spinal stroke
     Dosage: A TOTAL OF 6 MG EPTIFIBATIDE
     Route: 013
  3. VERAPAMIL [Suspect]
     Active Substance: VERAPAMIL HYDROCHLORIDE
     Indication: Spinal stroke
     Dosage: A TOTAL OF 5 MG VERAPAMIL
     Route: 013

REACTIONS (1)
  - Subarachnoid haemorrhage [Recovering/Resolving]
